FAERS Safety Report 8443493-5 (Version None)
Quarter: 2012Q2

REPORT INFORMATION
  Report Type: 
  Country: None (occurrence: None)
  Receive Date: 20120605
  Receipt Date: 20120525
  Transmission Date: 20120825
  Serious: Yes (Other)
  Sender: FDA-Public Use
  Company Number: 2012SP028859

PATIENT
  Age: 48 Year
  Sex: Female

DRUGS (6)
  1. PEGASYS [Suspect]
     Indication: HEPATITIS C
     Dosage: 150 MCG;QW
     Dates: start: 20110502, end: 20120402
  2. DELURSAN [Concomitant]
  3. COPEGUS [Suspect]
     Indication: HEPATITIS C
     Dosage: 1000 MG;QD
     Dates: start: 20110502, end: 20120402
  4. FOLIC ACID [Concomitant]
  5. VICTRELIS [Suspect]
     Indication: HEPATITIS C
     Dosage: 800 MG;TID
     Dates: start: 20110530, end: 20120402
  6. BETASELEN [Concomitant]

REACTIONS (2)
  - DERMATITIS BULLOUS [None]
  - PORPHYRIA NON-ACUTE [None]
